FAERS Safety Report 8814176 (Version 1)
Quarter: 2012Q4

REPORT INFORMATION
  Report Type: 
  Country: CA (occurrence: CA)
  Receive Date: 20120928
  Receipt Date: 20120928
  Transmission Date: 20130627
  Serious: Yes (Other)
  Sender: FDA-Public Use
  Company Number: CA-JNJFOC-20120908286

PATIENT
  Sex: Male

DRUGS (3)
  1. REMICADE [Suspect]
     Indication: HIDRADENITIS
     Route: 042
     Dates: start: 20120515
  2. STEROIDS NOS [Concomitant]
     Route: 065
  3. DOXYCYCLINE [Concomitant]
     Route: 065

REACTIONS (1)
  - Hidradenitis [Unknown]
